FAERS Safety Report 5614090-1 (Version None)
Quarter: 2008Q1

REPORT INFORMATION
  Report Type: 
  Country: None (occurrence: None)
  Receive Date: 20080130
  Receipt Date: 20080128
  Transmission Date: 20080703
  Serious: Yes (Hospitalization)
  Sender: FDA-Public Use
  Company Number: 2002-204-0015

PATIENT
  Age: 61 Year
  Sex: Female

DRUGS (15)
  1. ZONEGRAN [Suspect]
     Indication: PARKINSON'S DISEASE
     Dosage: 100 MG, 1 IN 1 D, ORAL
     Route: 048
     Dates: start: 20040512, end: 20040621
  2. ADOFEED (FLURBIPROFEN) [Concomitant]
  3. SINEMET [Concomitant]
  4. SYMMETREL [Concomitant]
  5. AMOBAN (ZOPICLONE) [Concomitant]
  6. SELEGILINE HYDROCHLORIDE (SELEGILINE HYDROCHLORIDE) [Concomitant]
  7. CABERGOLINE [Concomitant]
  8. FAMOTIDINE [Concomitant]
  9. LOXONIN (LOXOPROFEN SODIUM) [Concomitant]
  10. MUCOSTA (REBAMIPIDE) [Concomitant]
  11. METHYCOBAL (MECOBALAMIN) [Concomitant]
  12. FELBINAC (FELBINAC) [Concomitant]
  13. HALCION [Concomitant]
  14. SHAKUYAKU-KANZO-TO [Concomitant]
  15. MS ONSHIPPU [Concomitant]

REACTIONS (1)
  - TOXIC SKIN ERUPTION [None]
